FAERS Safety Report 9669218 (Version 1)
Quarter: 2013Q4

REPORT INFORMATION
  Report Type: Spontaneous
  Country: AU (occurrence: AU)
  Receive Date: 20131105
  Receipt Date: 20131105
  Transmission Date: 20140711
  Serious: Yes (Other)
  Sender: FDA-Public Use
  Company Number: AU-SA-2013SA109778

PATIENT
  Age: 52 Year
  Sex: Female

DRUGS (1)
  1. LANTUS [Suspect]
     Indication: TYPE 2 DIABETES MELLITUS
     Route: 058
     Dates: start: 201207

REACTIONS (5)
  - Serotonin syndrome [Unknown]
  - Blood glucose increased [Unknown]
  - Malaise [Unknown]
  - Malaise [Unknown]
  - Fatigue [Unknown]
